FAERS Safety Report 7944622-X (Version None)
Quarter: 2011Q4

REPORT INFORMATION
  Report Type: 
  Country: None (occurrence: None)
  Receive Date: 20111129
  Receipt Date: 20111123
  Transmission Date: 20120403
  Serious: Yes (Death, Life-Threatening, Hospitalization, Other)
  Sender: FDA-Public Use
  Company Number: US-JNJFOC-20110910885

PATIENT
  Sex: Male
  Weight: 67.59 kg

DRUGS (14)
  1. SOMATOSTATIN [Suspect]
     Indication: CARCINOID TUMOUR
     Route: 030
     Dates: start: 20110805, end: 20110905
  2. FENTANYL-100 [Concomitant]
     Indication: PAIN
     Route: 065
     Dates: start: 20110915
  3. FENTANYL-100 [Concomitant]
     Dosage: 50 TO 100 MCG EVERY 72 HOURS
     Route: 065
     Dates: start: 20110801
  4. COMPAZINE [Concomitant]
     Indication: NAUSEA
     Route: 065
  5. DILAUDID [Concomitant]
     Indication: PAIN
     Dosage: 2-8MG
     Route: 065
     Dates: start: 20110524
  6. ZYTIGA [Suspect]
     Route: 048
     Dates: start: 20110603
  7. ARIXTRA [Concomitant]
     Indication: ANTICOAGULANT THERAPY
     Dosage: } 3 YEARS
     Route: 065
  8. PREDNISONE TAB [Concomitant]
     Indication: PROSTATE CANCER
     Route: 065
     Dates: start: 20110607
  9. ZYTIGA [Suspect]
     Indication: PROSTATE CANCER METASTATIC
     Route: 048
     Dates: start: 20110922, end: 20110929
  10. DILTIAZEM HCL [Concomitant]
     Indication: HYPERTENSION
     Dosage: } 5 YEARS
     Route: 048
     Dates: start: 20110805, end: 20111007
  11. AMLODIPINE [Concomitant]
     Indication: HYPERTENSION
     Dosage: } 7 YEARS
     Route: 065
  12. PREDNISONE TAB [Concomitant]
     Route: 065
     Dates: start: 20110501
  13. ZYTIGA [Suspect]
     Route: 048
     Dates: end: 20111001
  14. EVEROLIMUS [Suspect]
     Indication: CARCINOID TUMOUR
     Route: 048
     Dates: start: 20110906

REACTIONS (7)
  - HEPATIC FAILURE [None]
  - MALIGNANT PLEURAL EFFUSION [None]
  - HEPATIC ENZYME INCREASED [None]
  - METASTASES TO PLEURA [None]
  - LIVER FUNCTION TEST ABNORMAL [None]
  - COMA [None]
  - ASCITES [None]
